FAERS Safety Report 6568786-8 (Version None)
Quarter: 2010Q1

REPORT INFORMATION
  Report Type: 
  Country: None (occurrence: None)
  Receive Date: 20100128
  Receipt Date: 20100113
  Transmission Date: 20100710
  Serious: Yes (Other)
  Sender: FDA-Public Use
  Company Number: 2009AC000241

PATIENT
  Age: 62 Year
  Sex: Male
  Weight: 103.8737 kg

DRUGS (41)
  1. DIGOXIN [Suspect]
     Dosage: 0.25 MG; QD; PO
     Route: 048
     Dates: start: 20030707
  2. VIAGRA [Concomitant]
  3. CARAFATE [Concomitant]
  4. GLYNASE [Concomitant]
  5. VALIUM [Concomitant]
  6. TYLENOL-500 [Concomitant]
  7. PLAVIX [Concomitant]
  8. COUMADIN [Concomitant]
  9. GLYBURIDE [Concomitant]
  10. LISINOPRIL [Concomitant]
  11. TYLOX [Concomitant]
  12. XANAX [Concomitant]
  13. AMOXICILLIN [Concomitant]
  14. METOPROLOL TARTRATE [Concomitant]
  15. NORTRIPTYLINE HCL [Concomitant]
  16. GUAIFENEX [Concomitant]
  17. LIPITOR [Concomitant]
  18. FUROSEMIDE [Concomitant]
  19. SPIRONOLACTONE [Concomitant]
  20. DILTIAZEM HCL [Concomitant]
  21. CYCLOBENZAPRINE [Concomitant]
  22. ISOMETH-APAP [Concomitant]
  23. TOPROL-XL [Concomitant]
  24. BUPROPION [Concomitant]
  25. IONAMIN-30 [Concomitant]
  26. ZETIA [Concomitant]
  27. AMBIEN [Concomitant]
  28. ZOLOFT [Concomitant]
  29. METFORMIN [Concomitant]
  30. EFFEXOR [Concomitant]
  31. BENZONATETE [Concomitant]
  32. LEVAQUIN [Concomitant]
  33. ALPRAZOLAM [Concomitant]
  34. CHANTIX [Concomitant]
  35. DEPAKOTE [Concomitant]
  36. ZOLPIDEM [Concomitant]
  37. AMIODARONE HCL [Concomitant]
  38. SERTRALINE HCL [Concomitant]
  39. ASPIRIN [Concomitant]
  40. CITALOPRAM [Concomitant]
  41. GLYLURID [Concomitant]

REACTIONS (23)
  - ACUTE MYOCARDIAL INFARCTION [None]
  - AORTIC DILATATION [None]
  - AORTIC VALVE INCOMPETENCE [None]
  - ASTHENIA [None]
  - ATRIAL FIBRILLATION [None]
  - BALANCE DISORDER [None]
  - CEREBROVASCULAR ACCIDENT [None]
  - DILATATION ATRIAL [None]
  - DILATATION VENTRICULAR [None]
  - DYSPNOEA [None]
  - ECONOMIC PROBLEM [None]
  - EJECTION FRACTION DECREASED [None]
  - ELECTROCARDIOGRAM ST-T CHANGE [None]
  - FALL [None]
  - LOSS OF CONSCIOUSNESS [None]
  - LOSS OF EMPLOYMENT [None]
  - MEMORY IMPAIRMENT [None]
  - MITRAL VALVE INCOMPETENCE [None]
  - MULTIPLE INJURIES [None]
  - PALPITATIONS [None]
  - PANIC ATTACK [None]
  - TRICUSPID VALVE INCOMPETENCE [None]
  - VENTRICULAR HYPOKINESIA [None]
